FAERS Safety Report 11925382 (Version 2)
Quarter: 2016Q1

REPORT INFORMATION
  Report Type: Spontaneous
  Country: US (occurrence: US)
  Receive Date: 20160118
  Receipt Date: 20160129
  Transmission Date: 20160526
  Serious: Yes (Hospitalization)
  Sender: FDA-Public Use
  Company Number: US-GUERBET LLC-1046583

PATIENT
  Age: 11 Year
  Sex: Male
  Weight: 35.6 kg

DRUGS (3)
  1. DOTAREM [Suspect]
     Active Substance: GADOTERATE MEGLUMINE
     Indication: NUCLEAR MAGNETIC RESONANCE IMAGING BRAIN
     Route: 042
     Dates: start: 20151229, end: 20151229
  2. PREDNISONE. [Concomitant]
     Active Substance: PREDNISONE
  3. GROWTH HORMONE [Concomitant]
     Active Substance: SOMATROPIN

REACTIONS (4)
  - Urticaria [Recovered/Resolved]
  - Respiratory arrest [Recovered/Resolved]
  - Wheezing [Recovered/Resolved]
  - Oxygen saturation decreased [Recovered/Resolved]

NARRATIVE: CASE EVENT DATE: 20151229
